FAERS Safety Report 8572830-6 (Version None)
Quarter: 2012Q2

REPORT INFORMATION
  Report Type: 
  Country: None (occurrence: None)
  Receive Date: 20120423
  Receipt Date: 20100910
  Transmission Date: 20120825
  Serious: Yes (Hospitalization)
  Sender: FDA-Public Use
  Company Number: PHHY2010US60087

PATIENT
  Age: 28 Year
  Sex: Female

DRUGS (1)
  1. EXJADE [Suspect]
     Dosage: 1750 MG, QD, ORAL
     Route: 048

REACTIONS (5)
  - ABDOMINAL PAIN [None]
  - VOMITING [None]
  - DIARRHOEA [None]
  - NAUSEA [None]
  - CHOLELITHIASIS [None]
